FAERS Safety Report 24396877 (Version 4)
Quarter: 2025Q2

REPORT INFORMATION
  Report Type: Spontaneous
  Country: US (occurrence: US)
  Receive Date: 20241004
  Receipt Date: 20250616
  Transmission Date: 20250717
  Serious: No
  Sender: MERCK SHARP & DOHME LLC
  Company Number: None

PATIENT
  Sex: Male
  Weight: 97.5 kg

DRUGS (15)
  1. SOTATERCEPT [Suspect]
     Active Substance: SOTATERCEPT
     Indication: Product used for unknown indication
     Dates: start: 2024
  2. SOTATERCEPT [Suspect]
     Active Substance: SOTATERCEPT
  3. SOTATERCEPT [Suspect]
     Active Substance: SOTATERCEPT
  4. SOTATERCEPT [Suspect]
     Active Substance: SOTATERCEPT
  5. ORENITRAM [Suspect]
     Active Substance: TREPROSTINIL
     Indication: Pulmonary arterial hypertension
     Dosage: DOSE DESCRIPTION : 13 MILLIGRAM, TID?DAILY DOSE : 39 MILLIGRAM?STRENGTH: 1 MG, 5 MG
     Route: 048
     Dates: start: 20240125
  6. ADEMPAS [Concomitant]
     Active Substance: RIOCIGUAT
  7. TYLENOL EXTRA STRENGTH [Concomitant]
     Active Substance: ACETAMINOPHEN
  8. ASPIRIN [Concomitant]
     Active Substance: ASPIRIN
  9. FLONASE ALLERGY RELIEF [Concomitant]
     Active Substance: FLUTICASONE PROPIONATE
  10. D 400, Vitamin d (Ergocalciferol) [Concomitant]
  11. SPIRONOLACTONE [Concomitant]
     Active Substance: SPIRONOLACTONE
  12. FUROSEMIDE [Concomitant]
     Active Substance: FUROSEMIDE
  13. DIGOXIN [Concomitant]
     Active Substance: DIGOXIN
  14. AMBRISENTAN [Concomitant]
     Active Substance: AMBRISENTAN
  15. OXYGEN [Concomitant]
     Active Substance: OXYGEN

REACTIONS (6)
  - Injection site bruising [Unknown]
  - Haemoglobin increased [Unknown]
  - Increased need for sleep [Unknown]
  - Headache [Unknown]
  - Fatigue [Unknown]
  - Weight increased [Unknown]

NARRATIVE: CASE EVENT DATE: 20240101
